FAERS Safety Report 8267350-2 (Version None)
Quarter: 2012Q2

REPORT INFORMATION
  Report Type: 
  Country: None (occurrence: None)
  Receive Date: 20120409
  Receipt Date: 20120330
  Transmission Date: 20120825
  Serious: Yes (Other)
  Sender: FDA-Public Use
  Company Number: PHEH2012US007142

PATIENT
  Age: 85 Year
  Sex: Male

DRUGS (2)
  1. NAMENDA [Suspect]
     Dosage: UNK
  2. EXELON [Suspect]
     Dosage: UNK UKN, UNK
     Route: 062

REACTIONS (1)
  - CEREBROVASCULAR ACCIDENT [None]
